FAERS Safety Report 10209303 (Version 1)
Quarter: 2014Q2

REPORT INFORMATION
  Report Type: Spontaneous
  Country: IT (occurrence: IT)
  Receive Date: 20140530
  Receipt Date: 20140530
  Transmission Date: 20141212
  Serious: Yes (Hospitalization)
  Sender: FDA-Public Use
  Company Number: PHHY2014IT063496

PATIENT
  Age: 67 Year
  Sex: Female

DRUGS (10)
  1. METFORMIN [Suspect]
     Indication: TYPE 2 DIABETES MELLITUS
     Dosage: 850 MG, TID
     Route: 048
     Dates: start: 20140101, end: 20140210
  2. HUMALOG [Suspect]
     Indication: TYPE 2 DIABETES MELLITUS
     Dosage: 28 IU, QD
     Route: 058
     Dates: start: 20140101, end: 20140210
  3. LANTUS [Suspect]
     Indication: TYPE 2 DIABETES MELLITUS
     Dosage: 22 IU, QD
     Route: 058
     Dates: start: 20140101, end: 20140210
  4. TAVOR (LORAZEPAM) [Concomitant]
     Route: 048
  5. ZYLORIC [Concomitant]
     Route: 048
  6. CARDIOASPIRIN [Concomitant]
     Route: 048
  7. CARBOLITHIUM [Concomitant]
     Route: 048
  8. SELEPARIN [Concomitant]
  9. FUROSEMIDE [Concomitant]
     Route: 048
  10. CLOZAPINE [Concomitant]
     Dosage: 100 MG, UNK
     Route: 048

REACTIONS (2)
  - Hypoglycaemia [Unknown]
  - Sopor [Unknown]
